FAERS Safety Report 21754903 (Version 1)
Quarter: 2022Q4

REPORT INFORMATION
  Report Type: Spontaneous
  Country: FR (occurrence: FR)
  Receive Date: 20221220
  Receipt Date: 20221220
  Transmission Date: 20230112
  Serious: Yes (Life-Threatening)
  Sender: FDA-Public Use
  Company Number: None

PATIENT
  Age: 68 Year
  Sex: Male
  Weight: 85 kg

DRUGS (4)
  1. LINEZOLID [Suspect]
     Active Substance: LINEZOLID
     Indication: Osteitis
     Dosage: UNIT DOSE : 600 MG, FREQUENCY TIME : 12 HOURS, DURATION :23 DAYS
     Route: 065
     Dates: start: 20220908, end: 20220930
  2. MEROPENEM [Suspect]
     Active Substance: MEROPENEM
     Indication: Osteitis
     Dosage: UNIT DOSE : 2 GRAM, FREQUENCY TIME : 8  HOURS, DURATION : 20 DAYS
     Route: 065
     Dates: start: 20220915, end: 20221004
  3. LOVENOX [Concomitant]
     Active Substance: ENOXAPARIN SODIUM
     Indication: Thrombosis prophylaxis
     Dosage: UNIT DOSE : 4000 IU, FREQUENCY TIME : 24  HOURS, DURATION : 46 DAYS
     Route: 065
     Dates: start: 20220908, end: 20221024
  4. PIPERACILLIN SODIUM\TAZOBACTAM SODIUM [Concomitant]
     Active Substance: PIPERACILLIN SODIUM\TAZOBACTAM SODIUM
     Indication: Osteitis
     Dosage: UNIT DOSE : 1 GRAM, FREQUENCY TIME : 8  HOURS, DURATION : 6 DAYS
     Dates: start: 20220908, end: 20220914

REACTIONS (1)
  - Thrombocytopenia [Recovered/Resolved]

NARRATIVE: CASE EVENT DATE: 20220926
